FAERS Safety Report 6666334-5 (Version None)
Quarter: 2010Q1

REPORT INFORMATION
  Report Type: 
  Country: None (occurrence: None)
  Receive Date: 20100331
  Receipt Date: 20100308
  Transmission Date: 20100710
  Serious: Yes (Death, Hospitalization, Other)
  Sender: FDA-Public Use
  Company Number: 009199

PATIENT
  Age: 52 Year
  Sex: Female

DRUGS (4)
  1. BUSULFEX [Suspect]
  2. FLUDARABINE PHOSPHATE [Concomitant]
  3. TACROLIMUS [Concomitant]
  4. METHOTREXATE [Concomitant]

REACTIONS (4)
  - ACUTE GRAFT VERSUS HOST DISEASE [None]
  - ACUTE RESPIRATORY DISTRESS SYNDROME [None]
  - BRONCHOPULMONARY ASPERGILLOSIS [None]
  - INFLUENZA [None]
